FAERS Safety Report 14717488 (Version 14)
Quarter: 2019Q3

REPORT INFORMATION
  Report Type: Spontaneous
  Country: US (occurrence: US)
  Receive Date: 20180404
  Receipt Date: 20190923
  Transmission Date: 20191004
  Serious: Yes (Hospitalization, Other)
  Sender: FDA-Public Use
  Company Number: US-SA-2018SA004655

PATIENT
  Age: 26 Year
  Sex: Female

DRUGS (3)
  1. DUPIXENT [Suspect]
     Active Substance: DUPILUMAB
     Dosage: 300 MG,QOW
     Route: 058
     Dates: start: 201712
  2. DUPIXENT [Suspect]
     Active Substance: DUPILUMAB
     Indication: DERMATITIS ATOPIC
     Dosage: 600 MG 1X, ON DAY 1
     Route: 058
     Dates: start: 201711, end: 201711
  3. DUPIXENT [Suspect]
     Active Substance: DUPILUMAB
     Dosage: 300 MG,QOW, ON DAY 15
     Route: 058
     Dates: start: 201711

REACTIONS (12)
  - Suicide attempt [Unknown]
  - Product dose omission [Unknown]
  - Mental disorder [Unknown]
  - Eye pain [Unknown]
  - Vision blurred [Unknown]
  - Device issue [Unknown]
  - Bipolar disorder [Unknown]
  - Blindness [Unknown]
  - Visual impairment [Unknown]
  - Hospitalisation [Unknown]
  - Eye disorder [Unknown]
  - Extra dose administered [Unknown]

NARRATIVE: CASE EVENT DATE: 2017
